FAERS Safety Report 19985268 (Version 1)
Quarter: 2021Q4

REPORT INFORMATION
  Report Type: Spontaneous
  Country: NL (occurrence: NL)
  Receive Date: 20211022
  Receipt Date: 20211022
  Transmission Date: 20220303
  Serious: Yes (Other)
  Sender: FDA-Public Use
  Company Number: None

PATIENT
  Age: 57 Year
  Sex: Male
  Weight: 79 kg

DRUGS (2)
  1. TOFACITINIB CITRATE [Suspect]
     Active Substance: TOFACITINIB CITRATE
     Indication: Colitis ulcerative
     Dosage: 10 MG, 2X/DAY
     Route: 048
     Dates: start: 20210805, end: 20210826
  2. PREDNISONE [Concomitant]
     Active Substance: PREDNISONE
     Dosage: 20 MG, 1X/DAY

REACTIONS (1)
  - Thrombosis [Recovering/Resolving]

NARRATIVE: CASE EVENT DATE: 20210823
